FAERS Safety Report 4371707-X (Version None)
Quarter: 2004Q2

REPORT INFORMATION
  Report Type: 
  Country: None (occurrence: None)
  Receive Date: 20040604
  Receipt Date: 20040604
  Transmission Date: 20050107
  Serious: Yes (Life-Threatening)
  Sender: FDA-Public Use
  Company Number: None

PATIENT
  Sex: Female
  Weight: 92 kg

DRUGS (2)
  1. ADENOSINE [Suspect]
     Indication: CARDIOVASCULAR EVALUATION
     Dates: start: 20040309
  2. ADENOSINE [Suspect]
     Indication: PREOPERATIVE CARE
     Dates: start: 20040309

REACTIONS (4)
  - ACUTE RESPIRATORY FAILURE [None]
  - HYPOXIA [None]
  - ISCHAEMIC STROKE [None]
  - PROCEDURAL COMPLICATION [None]
